FAERS Safety Report 9039479 (Version 1)
Quarter: 2013Q1

REPORT INFORMATION
  Report Type: Report from Study
  Country: US (occurrence: US)
  Receive Date: 20130129
  Receipt Date: 20130129
  Transmission Date: 20140127
  Serious: No
  Sender: FDA-Public Use
  Company Number: US-ABBOTT-12P-163-0934984-00

PATIENT
  Age: 67 Year
  Sex: Female

DRUGS (12)
  1. HUMIRA 40 MG/0.8 ML PEN [Suspect]
     Indication: RHEUMATOID ARTHRITIS
     Dates: start: 20120401
  2. PROAIR [Concomitant]
     Indication: CHRONIC OBSTRUCTIVE PULMONARY DISEASE
     Dosage: 2 PUFFS AS NEEDED
  3. FLEXERIL [Concomitant]
     Indication: MUSCLE SPASMS
  4. HYDROCODONE [Concomitant]
     Indication: PAIN
     Dosage: 10/325 2 TABS FOUR TIMES DAILY
  5. SPIRIVA [Concomitant]
     Indication: CHRONIC OBSTRUCTIVE PULMONARY DISEASE
  6. SYMBICORT [Concomitant]
     Indication: CHRONIC OBSTRUCTIVE PULMONARY DISEASE
     Dosage: 2 PUFFS IN AM
  7. SYMBICORT [Concomitant]
     Dosage: 2 PUFFS AT NIGHT
  8. PHENERGAN [Concomitant]
     Indication: NAUSEA
     Dosage: 25MG 1 TABLET AS NEEDED
  9. EXFORGE [Concomitant]
     Indication: HEART RATE IRREGULAR
     Dosage: 5/320 1 TABLET DAILY
  10. EXFORGE [Concomitant]
     Indication: PULMONARY VALVE INCOMPETENCE
  11. VALIUM [Concomitant]
     Indication: ANXIETY
  12. KLONOPIN [Concomitant]
     Indication: ANXIETY

REACTIONS (1)
  - Herpes zoster [Not Recovered/Not Resolved]
